FAERS Safety Report 10238130 (Version 1)
Quarter: 2014Q2

REPORT INFORMATION
  Report Type: Spontaneous
  Country: GB (occurrence: GB)
  Receive Date: 20140616
  Receipt Date: 20140616
  Transmission Date: 20141212
  Serious: Yes (Disabling, Other)
  Sender: FDA-Public Use
  Company Number: PHFR2014GB004194

PATIENT
  Age: 84 Year
  Sex: Male

DRUGS (1)
  1. ACLASTA [Suspect]
     Indication: OSTEITIS DEFORMANS
     Dosage: UNK UKN, UNK
     Route: 042
     Dates: start: 2011, end: 2011

REACTIONS (2)
  - Skin ulcer [Recovered/Resolved]
  - Pain in extremity [Not Recovered/Not Resolved]
